FAERS Safety Report 8439543 (Version 6)
Quarter: 2013Q1

REPORT INFORMATION
  Report Type: Report from Study
  Country: JP (occurrence: JP)
  Receive Date: 20120304
  Receipt Date: 20130226
  Transmission Date: 20140127
  Serious: Yes (Hospitalization)
  Sender: FDA-Public Use
  Company Number: JP-VERTEX PHARMACEUTICALS INC.-AE-2012-002913

PATIENT
  Age: 57 Year
  Sex: Male

DRUGS (9)
  1. VX-950 (TELAPREVIR) [Suspect]
     Indication: CHRONIC HEPATITIS C
     Dosage: 2250 MG, QD
     Route: 048
     Dates: start: 20120217, end: 20120227
  2. RIBAVIRIN [Concomitant]
     Dosage: 600 MG, QD
     Route: 048
     Dates: start: 20120217, end: 20120227
  3. PEGINTRON [Concomitant]
     Dosage: 1.5 ?G/KG, QW
     Route: 058
     Dates: start: 20120217, end: 20120223
  4. PEGINTRON [Concomitant]
     Dosage: 1.1 ?G/KG, QW
     Route: 058
     Dates: start: 20120224, end: 20120227
  5. GLYCYRON [Concomitant]
     Dosage: 3 DF, QD
     Route: 048
  6. BLOPRESS [Concomitant]
     Dosage: 4 MG, QD
     Route: 048
  7. ATELEC [Concomitant]
     Dosage: 10 MG, QD
     Route: 048
  8. LOXONIN [Concomitant]
     Dosage: 60 MG, QD
     Route: 048
     Dates: start: 20120217, end: 20120217
  9. MUCOSTA [Concomitant]
     Dosage: 300 MG, QD
     Route: 048
     Dates: start: 20120218

REACTIONS (1)
  - Drug eruption [Recovered/Resolved]
